FAERS Safety Report 9091214 (Version 3)
Quarter: 2013Q3

REPORT INFORMATION
  Report Type: Spontaneous
  Country: US (occurrence: US)
  Receive Date: 20130201
  Receipt Date: 20130925
  Transmission Date: 20140515
  Serious: No
  Sender: FDA-Public Use
  Company Number: US-PFIZER INC-2013037122

PATIENT
  Age: 60 Year
  Sex: Male

DRUGS (1)
  1. CALAN [Suspect]
     Dosage: 120 MG, UNK

REACTIONS (3)
  - Drug ineffective [Unknown]
  - Dyspnoea [Unknown]
  - Pain [Unknown]
